FAERS Safety Report 7290212-4 (Version None)
Quarter: 2011Q1

REPORT INFORMATION
  Report Type: 
  Country: None (occurrence: None)
  Receive Date: 20110214
  Receipt Date: 20110209
  Transmission Date: 20110831
  Serious: Yes (Death, Other)
  Sender: FDA-Public Use
  Company Number: PHHY2010JP88084

PATIENT
  Sex: Female
  Weight: 41 kg

DRUGS (6)
  1. ISALON [Concomitant]
     Dosage: 200 MG, UNK
     Route: 048
  2. VALSARTAN [Suspect]
     Dosage: 80 MG, QD
     Route: 048
     Dates: start: 20070910
  3. NORVASC [Concomitant]
     Indication: HYPERTENSION
     Dosage: 5 MG, UNK
     Route: 048
     Dates: end: 20070720
  4. ACTONEL [Concomitant]
     Dosage: 2.5 MG, UNK
     Route: 048
     Dates: start: 20070910, end: 20090513
  5. LASIX [Concomitant]
     Dosage: 40 MG, UNK
     Route: 048
     Dates: start: 20071005
  6. ALLOPURINOL [Concomitant]
     Dosage: 200 MG, UNK
     Route: 048
     Dates: start: 20071015

REACTIONS (2)
  - BLOOD PRESSURE DIASTOLIC DECREASED [None]
  - ACUTE RESPIRATORY FAILURE [None]
